FAERS Safety Report 24130570 (Version 2)
Quarter: 2024Q4

REPORT INFORMATION
  Report Type: Report from Study
  Country: US (occurrence: US)
  Receive Date: 20240724
  Receipt Date: 20241115
  Transmission Date: 20250114
  Serious: Yes (Other)
  Sender: AUROBINDO
  Company Number: US-AUROBINDO-AUR-APL-2024-036201

PATIENT
  Sex: Female

DRUGS (11)
  1. HYDROXYCHLOROQUINE [Suspect]
     Active Substance: HYDROXYCHLOROQUINE
     Indication: Vulvovaginal disorder
     Dosage: UNK
     Route: 065
  2. MYCOPHENOLIC ACID [Suspect]
     Active Substance: MYCOPHENOLIC ACID
     Indication: Vulvovaginal disorder
     Dosage: UNK
     Route: 065
  3. METHOTREXATE [Suspect]
     Active Substance: METHOTREXATE
     Indication: Vulvovaginal disorder
     Dosage: UNK
     Route: 065
  4. TOFACITINIB [Suspect]
     Active Substance: TOFACITINIB
     Indication: Vulvovaginal disorder
     Dosage: 5 MILLIGRAM, TWO TIMES A DAY
     Route: 048
  5. ADALIMUMAB [Suspect]
     Active Substance: ADALIMUMAB
     Indication: Vulvovaginal disorder
     Dosage: UNK
     Route: 065
  6. USTEKINUMAB [Suspect]
     Active Substance: USTEKINUMAB
     Indication: Vulvovaginal disorder
     Dosage: UNK
     Route: 065
  7. NALTREXONE [Suspect]
     Active Substance: NALTREXONE
     Indication: Vulvovaginal disorder
     Dosage: UNK
     Route: 065
  8. ETANERCEPT [Suspect]
     Active Substance: ETANERCEPT
     Indication: Vulvovaginal disorder
     Dosage: UNK
     Route: 065
  9. DAPSONE [Suspect]
     Active Substance: DAPSONE
     Indication: Vulvovaginal disorder
     Dosage: UNK
     Route: 065
  10. IXEKIZUMAB [Suspect]
     Active Substance: IXEKIZUMAB
     Indication: Vulvovaginal disorder
     Dosage: UNK
     Route: 065
  11. TACROLIMUS [Suspect]
     Active Substance: TACROLIMUS
     Indication: Vulvovaginal disorder
     Dosage: UNK
     Route: 065

REACTIONS (3)
  - Gastrointestinal haemorrhage [Recovered/Resolved]
  - Off label use [Unknown]
  - Drug ineffective [Unknown]
